FAERS Safety Report 17312778 (Version 2)
Quarter: 2020Q3

REPORT INFORMATION
  Report Type: Spontaneous
  Country: JP (occurrence: JP)
  Receive Date: 20200123
  Receipt Date: 20200713
  Transmission Date: 20201102
  Serious: Yes (Death, Life-Threatening)
  Sender: FDA-Public Use
  Company Number: JP-009507513-2001JPN001509J

PATIENT
  Age: 67 Year
  Sex: Male
  Weight: 60 kg

DRUGS (19)
  1. GLUFAST [Concomitant]
     Active Substance: MITIGLINIDE
     Dosage: 10 MILLIGRAM, BID, JUST BEFORE BREAKFAST AND DINNER
     Route: 048
     Dates: end: 20191218
  2. FEBURIC [Concomitant]
     Active Substance: FEBUXOSTAT
     Dosage: 10 MILLIGRAM, QD,AFTER BREAKFAST
     Route: 048
  3. TAKECAB [Concomitant]
     Active Substance: VONOPRAZAN FUMARATE
     Dosage: 20 MILLIGRAM, QD,AFTER BREAKFAST
     Route: 048
  4. TRAZENTA [Concomitant]
     Active Substance: LINAGLIPTIN
     Dosage: 5 MILLIGRAM, QD,AFTER BREAKFAST
     Route: 048
     Dates: end: 20191218
  5. THYRADIN S [Concomitant]
     Active Substance: LEVOTHYROXINE SODIUM
     Dosage: 50 MICROGRAM, QD,AFTER BREAKFAST
     Route: 048
  6. CRESTOR [Concomitant]
     Active Substance: ROSUVASTATIN CALCIUM
     Dosage: 5 MILLIGRAM, QD,AFTER BREAKFAST
     Route: 048
  7. BIOFERMIN [Concomitant]
     Active Substance: DIETARY SUPPLEMENT\PROBIOTICS
     Dosage: 2 GRAM, TID,,AFTER EACH MEAL
     Route: 065
  8. IRBETAN [Concomitant]
     Active Substance: IRBESARTAN
     Dosage: 100 MILLIGRAM, QD,AFTER BREAKFAST
     Route: 048
  9. ELNEOPA NF NO. 1 [Concomitant]
     Dosage: 1000 MILLILITER, BID
     Route: 051
  10. COCARL [Concomitant]
     Active Substance: ACETAMINOPHEN
     Dosage: 400 MILLIGRAM, QID, AFTER MEALS
     Route: 048
  11. ZOLINZA [Suspect]
     Active Substance: VORINOSTAT
     Indication: CUTANEOUS T-CELL LYMPHOMA
     Dosage: 400 MILLIGRAM, QD
     Route: 048
     Dates: start: 20191025, end: 20191118
  12. ZOLINZA [Suspect]
     Active Substance: VORINOSTAT
     Dosage: 300 MILLIGRAM, QD
     Route: 048
     Dates: start: 20191127, end: 20191218
  13. MS ONSHIPPU [Concomitant]
     Active Substance: CAMPHOR\CAPSICUM\METHYL SALICYLATE
     Dosage: 100 GRAM,SUITABLE FOR EXTERNAL USE
     Route: 051
  14. HUMULIN R:VIAL [Concomitant]
     Dosage: 6 INTERNATIONAL UNIT, BID,MIXED INJECTION
     Route: 042
     Dates: end: 20191218
  15. METGLUCO [Concomitant]
     Active Substance: METFORMIN HYDROCHLORIDE
     Dosage: 500 MILLIGRAM, TID,AFTER EACH MEAL
     Route: 048
     Dates: end: 20191218
  16. CANAGLU [Concomitant]
     Active Substance: CANAGLIFLOZIN
     Dosage: 100 MILLIGRAM, QD,AFTER BREAKFAST
     Route: 048
     Dates: end: 20191218
  17. AMLODIN OD [Concomitant]
     Active Substance: AMLODIPINE BESYLATE
     Dosage: 10 MILLIGRAM, QD,AFTER BREAKFAST
     Route: 048
  18. THYRADIN S [Concomitant]
     Active Substance: LEVOTHYROXINE SODIUM
     Dosage: 25 MICROGRAM, QD,AFTER BREAKFAST
     Route: 048
  19. AZUNOL [Concomitant]
     Dosage: 20 GRAM,SUITABLE FOR EXTERNAL USE
     Route: 051

REACTIONS (3)
  - Haemoglobin decreased [Recovering/Resolving]
  - Renal impairment [Fatal]
  - Platelet count decreased [Recovering/Resolving]

NARRATIVE: CASE EVENT DATE: 20191118
